FAERS Safety Report 9577509 (Version 1)
Quarter: 2013Q4

REPORT INFORMATION
  Report Type: Spontaneous
  Country: US (occurrence: US)
  Receive Date: 20131001
  Receipt Date: 20131001
  Transmission Date: 20140711
  Serious: No
  Sender: FDA-Public Use
  Company Number: US-AMGEN-USASP2013008349

PATIENT
  Sex: Female
  Weight: 74.83 kg

DRUGS (9)
  1. ENBREL [Suspect]
     Indication: RHEUMATOID ARTHRITIS
     Dosage: 50 MG, QWK
     Route: 058
  2. KLONOPIN [Concomitant]
     Dosage: 1 MG, UNK
  3. PHENERGAN                          /00033001/ [Concomitant]
     Dosage: 25 MG, UNK
  4. METHOTREXATE [Concomitant]
     Dosage: 2.5 MG, UNK
  5. ROBAXIN [Concomitant]
     Dosage: 500 MG, UNK
  6. GABAPENTIN [Concomitant]
     Dosage: 300 MG, UNK
  7. WELLBUTRIN [Concomitant]
     Dosage: 75 MG, UNK
  8. ZANAFLEX [Concomitant]
     Dosage: 2 MG, UNK
  9. NORCO [Concomitant]
     Dosage: 5-325 MG

REACTIONS (1)
  - Drug ineffective [Unknown]
